FAERS Safety Report 24581495 (Version 1)
Quarter: 2024Q4

REPORT INFORMATION
  Report Type: Spontaneous
  Country: US (occurrence: None)
  Receive Date: 20241105
  Receipt Date: 20241105
  Transmission Date: 20250115
  Serious: Yes (Other)
  Sender: Public
  Company Number: None

PATIENT
  Age: 59 Year
  Sex: Female
  Weight: 49.5 kg

DRUGS (6)
  1. AIMOVIG [Suspect]
     Active Substance: ERENUMAB-AOOE
     Indication: Migraine
  2. OMEPRAZOLE [Concomitant]
     Active Substance: OMEPRAZOLE
  3. UBRELVY [Concomitant]
     Active Substance: UBROGEPANT
  4. AIMOVIG [Concomitant]
     Active Substance: ERENUMAB-AOOE
  5. LORATADINE [Concomitant]
     Active Substance: LORATADINE
  6. CITALIPRAM [Concomitant]

REACTIONS (1)
  - Diverticulum intestinal [None]

NARRATIVE: CASE EVENT DATE: 20241031
